FAERS Safety Report 8503253-3 (Version None)
Quarter: 2012Q3

REPORT INFORMATION
  Report Type: 
  Country: None (occurrence: None)
  Receive Date: 20120711
  Receipt Date: 20120706
  Transmission Date: 20120928
  Serious: No
  Sender: FDA-Public Use
  Company Number: US-PFIZER INC-2012162438

PATIENT
  Sex: Female

DRUGS (1)
  1. LYRICA [Suspect]
     Indication: FIBROMYALGIA
     Dosage: 225 MG, 2X/DAY

REACTIONS (6)
  - OEDEMA PERIPHERAL [None]
  - VISUAL IMPAIRMENT [None]
  - FIBROMYALGIA [None]
  - HUNGER [None]
  - APHASIA [None]
  - NAUSEA [None]
